FAERS Safety Report 5944766-8 (Version None)
Quarter: 2008Q4

REPORT INFORMATION
  Report Type: 
  Country: None (occurrence: None)
  Receive Date: 20081107
  Receipt Date: 20081103
  Transmission Date: 20090506
  Serious: Yes (Disabling)
  Sender: FDA-Public Use
  Company Number: NL-AMGEN-US317170

PATIENT
  Age: 62 Year
  Sex: Female

DRUGS (4)
  1. ENBREL [Suspect]
     Indication: RHEUMATOID ARTHRITIS
     Dosage: LYOPHILIZED: 50 MG EVEY 5 DAYS.
     Route: 058
     Dates: start: 20030101, end: 20080101
  2. ENBREL [Suspect]
     Dosage: PFS: 50 MG EVEY 5 DAYS.
     Route: 058
     Dates: start: 20080101
  3. PREDNISONE TAB [Concomitant]
     Route: 065
  4. METHOTREXATE [Concomitant]
     Route: 065

REACTIONS (4)
  - INJECTION SITE PAIN [None]
  - MOVEMENT DISORDER [None]
  - PNEUMONIA [None]
  - SWELLING [None]
